FAERS Safety Report 6254823-7 (Version None)
Quarter: 2009Q3

REPORT INFORMATION
  Report Type: 
  Country: None (occurrence: None)
  Receive Date: 20090702
  Receipt Date: 20090619
  Transmission Date: 20100115
  Serious: Yes (Other)
  Sender: FDA-Public Use
  Company Number: PHHY2009CA24864

PATIENT
  Sex: Female

DRUGS (9)
  1. CLOZARIL [Suspect]
     Dosage: UNK
     Route: 048
     Dates: start: 20081015
  2. PREVACID [Concomitant]
  3. LEVODOPA [Concomitant]
  4. CLONAZEPAM [Concomitant]
  5. RAMIPRIL [Concomitant]
  6. ARICEPT [Concomitant]
  7. COMTAN [Concomitant]
  8. SLOW-K [Concomitant]
  9. MUSTAT [Concomitant]

REACTIONS (6)
  - CELLULITIS [None]
  - INFECTION [None]
  - NEUTROPHIL COUNT DECREASED [None]
  - NEUTROPHIL COUNT INCREASED [None]
  - WHITE BLOOD CELL COUNT DECREASED [None]
  - WHITE BLOOD CELL COUNT INCREASED [None]
